FAERS Safety Report 11846256 (Version 2)
Quarter: 2015Q4

REPORT INFORMATION
  Report Type: Report from Study
  Country: DE (occurrence: JP)
  Receive Date: 20151217
  Receipt Date: 20151222
  Transmission Date: 20160305
  Serious: Yes (Disabling)
  Sender: FDA-Public Use
  Company Number: JP-FRI-1000081542

PATIENT
  Sex: Male
  Weight: 68 kg

DRUGS (7)
  1. MEMANTINE. [Suspect]
     Active Substance: MEMANTINE
     Dosage: 10 MG
     Route: 048
     Dates: start: 20121017, end: 20121023
  2. FLIVAS [Concomitant]
     Active Substance: NAFTOPIDIL
     Dates: start: 20090213, end: 20130911
  3. ARICEPT [Concomitant]
     Active Substance: DONEPEZIL HYDROCHLORIDE
     Dates: start: 20091214, end: 20130911
  4. MEMANTINE. [Suspect]
     Active Substance: MEMANTINE
     Indication: DEMENTIA ALZHEIMER^S TYPE
     Dosage: 5 MG
     Route: 048
     Dates: start: 20121010, end: 20121016
  5. MEMANTINE. [Suspect]
     Active Substance: MEMANTINE
     Dosage: 20 MG
     Route: 048
     Dates: start: 20121031, end: 20130911
  6. COMESGEN [Concomitant]
     Active Substance: METHYLCOBALAMIN
     Dates: end: 20130911
  7. MEMANTINE. [Suspect]
     Active Substance: MEMANTINE
     Dosage: 15 MG
     Route: 048
     Dates: start: 20121024, end: 20121030

REACTIONS (1)
  - Cervical spinal stenosis [Unknown]

NARRATIVE: CASE EVENT DATE: 20130624
